FAERS Safety Report 9640802 (Version 1)
Quarter: 2013Q4

REPORT INFORMATION
  Report Type: Report from Study
  Country: US (occurrence: US)
  Receive Date: 20131023
  Receipt Date: 20131023
  Transmission Date: 20140711
  Serious: No
  Sender: FDA-Public Use
  Company Number: US-ABBVIE-13P-163-1041410-00

PATIENT
  Age: 44 Year
  Sex: Female
  Weight: 68.1 kg

DRUGS (4)
  1. LUPRON DEPOT [Suspect]
     Indication: ENDOMETRIOSIS
     Route: 030
     Dates: start: 20130117
  2. SPIRONOLACTONE [Concomitant]
     Indication: ACNE
     Dosage: DAILY
     Route: 048
  3. LUNESTA [Concomitant]
     Indication: INSOMNIA
     Dosage: AT BEDTIME
  4. ADVIL [Concomitant]
     Indication: HEADACHE
     Route: 048

REACTIONS (3)
  - Hot flush [Not Recovered/Not Resolved]
  - Nausea [Unknown]
  - Abdominal pain [Unknown]
